FAERS Safety Report 10231835 (Version 4)
Quarter: 2014Q4

REPORT INFORMATION
  Report Type: Spontaneous
  Country: JP (occurrence: JP)
  Receive Date: 20140612
  Receipt Date: 20141014
  Transmission Date: 20150528
  Serious: Yes (Life-Threatening, Hospitalization)
  Sender: FDA-Public Use
  Company Number: JP-ROCHE-1417182

PATIENT
  Sex: Male
  Weight: 45 kg

DRUGS (25)
  1. LOXONIN [Concomitant]
     Active Substance: LOXOPROFEN SODIUM
     Route: 065
     Dates: start: 20140602, end: 20140603
  2. DIAMOX SEQUELS [Suspect]
     Active Substance: ACETAZOLAMIDE
     Indication: PRODUCT USED FOR UNKNOWN INDICATION
     Route: 042
     Dates: start: 20140419, end: 20140711
  3. PREDNISOLONE. [Concomitant]
     Active Substance: PREDNISOLONE
     Route: 065
     Dates: start: 20140618, end: 20140621
  4. PREDNISOLONE. [Concomitant]
     Active Substance: PREDNISOLONE
     Dosage: DOSE REDUCED
     Route: 065
     Dates: start: 20140719, end: 20140725
  5. AZOPT [Concomitant]
     Active Substance: BRINZOLAMIDE
     Route: 065
     Dates: start: 201404
  6. AZOPT [Concomitant]
     Active Substance: BRINZOLAMIDE
     Route: 065
     Dates: start: 20140602
  7. PREDNISOLONE. [Concomitant]
     Active Substance: PREDNISOLONE
     Route: 065
     Dates: start: 20140606, end: 20140609
  8. PREDNISOLONE. [Concomitant]
     Active Substance: PREDNISOLONE
     Route: 065
     Dates: start: 20140625
  9. WARFARIN [Concomitant]
     Active Substance: WARFARIN
  10. BRONUCK [Concomitant]
     Route: 065
     Dates: start: 20140526
  11. PREDNISOLONE. [Concomitant]
     Active Substance: PREDNISOLONE
     Dosage: DOSE INCREASED
     Route: 065
     Dates: start: 20140628
  12. PREDNISOLONE. [Concomitant]
     Active Substance: PREDNISOLONE
     Dosage: DOSE REDUCED
     Route: 065
     Dates: start: 20140726, end: 20140801
  13. ALPHAGAN P [Concomitant]
     Active Substance: BRIMONIDINE TARTRATE
     Route: 065
     Dates: start: 201404
  14. VIGAMOX [Concomitant]
     Active Substance: MOXIFLOXACIN HYDROCHLORIDE
     Route: 065
     Dates: start: 20140523
  15. RINDERON V [Concomitant]
     Active Substance: BETAMETHASONE VALERATE
     Route: 065
     Dates: start: 20140526
  16. PREDNISOLONE. [Concomitant]
     Active Substance: PREDNISOLONE
     Dosage: REDUCED DOSE
     Route: 065
     Dates: start: 20140614, end: 20140617
  17. PREDNISOLONE. [Concomitant]
     Active Substance: PREDNISOLONE
     Dosage: INCREASED DOSE
     Route: 065
     Dates: start: 20140627
  18. PREDNISOLONE. [Concomitant]
     Active Substance: PREDNISOLONE
     Dosage: DOSE REDUCED
     Route: 065
     Dates: start: 20140712, end: 20140718
  19. DUOTRAV [Concomitant]
     Active Substance: TIMOLOL\TRAVOPROST
     Route: 065
     Dates: start: 201404
  20. TEARBALANCE [Concomitant]
     Active Substance: HYALURONATE SODIUM
     Route: 065
     Dates: start: 201404
  21. LUCENTIS [Suspect]
     Active Substance: RANIBIZUMAB
     Indication: DIABETIC RETINAL OEDEMA
     Route: 050
     Dates: start: 20140530
  22. ASPARA POTASSIUM [Concomitant]
     Active Substance: POTASSIUM ASPARTATE
     Route: 065
     Dates: start: 20140419, end: 20140711
  23. BAYASPIRIN [Concomitant]
     Active Substance: ASPIRIN
  24. PREDNISOLONE. [Concomitant]
     Active Substance: PREDNISOLONE
     Dosage: REDUCED DOSE
     Route: 065
     Dates: start: 20140610, end: 20140613
  25. CRESTOR [Concomitant]
     Active Substance: ROSUVASTATIN CALCIUM

REACTIONS (2)
  - Human herpes virus 6 serology positive [Unknown]
  - Drug reaction with eosinophilia and systemic symptoms [Recovering/Resolving]
